FAERS Safety Report 25612148 (Version 2)
Quarter: 2025Q3

REPORT INFORMATION
  Report Type: Spontaneous
  Country: US (occurrence: US)
  Receive Date: 20250728
  Receipt Date: 20250729
  Transmission Date: 20251020
  Serious: No
  Sender: MYLAN
  Company Number: US-MYLANLABS-2025M1061586

PATIENT

DRUGS (4)
  1. LISDEXAMFETAMINE DIMESYLATE [Suspect]
     Active Substance: LISDEXAMFETAMINE DIMESYLATE
     Indication: Product used for unknown indication
  2. LISDEXAMFETAMINE DIMESYLATE [Suspect]
     Active Substance: LISDEXAMFETAMINE DIMESYLATE
     Route: 065
  3. LISDEXAMFETAMINE DIMESYLATE [Suspect]
     Active Substance: LISDEXAMFETAMINE DIMESYLATE
     Route: 065
  4. LISDEXAMFETAMINE DIMESYLATE [Suspect]
     Active Substance: LISDEXAMFETAMINE DIMESYLATE

REACTIONS (13)
  - Brain fog [Recovered/Resolved]
  - Sleep disorder [Recovered/Resolved]
  - Fatigue [Unknown]
  - Head discomfort [Recovered/Resolved]
  - Muscular weakness [Recovered/Resolved]
  - Hypoaesthesia [Recovered/Resolved]
  - Rash pruritic [Recovered/Resolved]
  - Irritability [Recovered/Resolved]
  - Feeling jittery [Recovered/Resolved]
  - Rosacea [Recovered/Resolved]
  - Therapeutic response decreased [Recovered/Resolved]
  - Product substitution issue [Recovered/Resolved]
  - Product availability issue [Unknown]
